FAERS Safety Report 5070144-2 (Version None)
Quarter: 2006Q3

REPORT INFORMATION
  Report Type: 
  Country: None (occurrence: None)
  Receive Date: 20060802
  Receipt Date: 20060802
  Transmission Date: 20061208
  Serious: Yes (Other)
  Sender: FDA-Public Use
  Company Number: None

PATIENT
  Age: 31 Year
  Sex: Female
  Weight: 99.7913 kg

DRUGS (2)
  1. LEVAQUIN [Suspect]
     Indication: INCISION SITE INFECTION
     Dosage: 500MG 1X PER DAY PO
     Route: 048
     Dates: start: 20060602, end: 20060614
  2. LEVAQUIN [Suspect]
     Indication: POSTOPERATIVE INFECTION
     Dosage: 500MG 1X PER DAY PO
     Route: 048
     Dates: start: 20060602, end: 20060614

REACTIONS (7)
  - ARTHRALGIA [None]
  - DEPRESSION [None]
  - GAIT DISTURBANCE [None]
  - IMPAIRED WORK ABILITY [None]
  - INSOMNIA [None]
  - MENTAL DISORDER [None]
  - TENDONITIS [None]
